FAERS Safety Report 11588859 (Version 1)
Quarter: 2015Q4

REPORT INFORMATION
  Report Type: Spontaneous
  Country: US (occurrence: None)
  Receive Date: 20151001
  Receipt Date: 20151001
  Transmission Date: 20160304
  Serious: No
  Sender: FDA-Public Use
  Company Number: None

PATIENT
  Age: 48 Year
  Sex: Female

DRUGS (1)
  1. INFED [Suspect]
     Active Substance: IRON DEXTRAN
     Indication: ANAEMIA
     Dosage: TEST DOSE X 1
     Route: 042
     Dates: start: 20150902, end: 20150902

REACTIONS (8)
  - Rash [None]
  - Dyspnoea [None]
  - Hypoaesthesia [None]
  - Pharyngeal oedema [None]
  - Lip swelling [None]
  - Cyanosis [None]
  - Swollen tongue [None]
  - Anxiety [None]

NARRATIVE: CASE EVENT DATE: 20150902
